FAERS Safety Report 4589456-1 (Version None)
Quarter: 2005Q1

REPORT INFORMATION
  Report Type: 
  Country: None (occurrence: None)
  Receive Date: 20050216
  Receipt Date: 20050131
  Transmission Date: 20050727
  Serious: Yes (Death)
  Sender: FDA-Public Use
  Company Number: 10094

PATIENT

DRUGS (1)
  1. PACLITAXEL [Suspect]
     Indication: SQUAMOUS CELL CARCINOMA

REACTIONS (2)
  - FEBRILE NEUTROPENIA [None]
  - PNEUMONIA [None]
